FAERS Safety Report 10803147 (Version 1)
Quarter: 2015Q1

REPORT INFORMATION
  Report Type: Spontaneous
  Country: US (occurrence: US)
  Receive Date: 20150217
  Receipt Date: 20150217
  Transmission Date: 20150721
  Serious: Yes (Other)
  Sender: FDA-Public Use
  Company Number: US-BAUSCH-BL-2014-007986

PATIENT
  Age: 66 Year
  Sex: Male

DRUGS (3)
  1. BESIVANCE [Concomitant]
     Active Substance: BESIFLOXACIN
     Indication: POSTOPERATIVE CARE
  2. PROLENSA [Suspect]
     Active Substance: BROMFENAC SODIUM
     Indication: POSTOPERATIVE CARE
  3. PRED FORTE [Concomitant]
     Active Substance: PREDNISOLONE ACETATE
     Indication: POSTOPERATIVE CARE

REACTIONS (2)
  - Ulcerative keratitis [Unknown]
  - Drug administration error [Unknown]
